FAERS Safety Report 14390684 (Version 1)
Quarter: 2018Q1

REPORT INFORMATION
  Report Type: Report from Study
  Country: US (occurrence: US)
  Receive Date: 20180116
  Receipt Date: 20180116
  Transmission Date: 20180509
  Serious: Yes (Other)
  Sender: FDA-Public Use
  Company Number: US-ROCHE-2052650

PATIENT
  Age: 76 Year
  Sex: Female
  Weight: 74.46 kg

DRUGS (3)
  1. GEMZAR [Concomitant]
     Active Substance: GEMCITABINE HYDROCHLORIDE
  2. RITUXAN [Suspect]
     Active Substance: RITUXIMAB
     Indication: NON-HODGKIN^S LYMPHOMA
     Dosage: ONGOING: NO
     Route: 065
     Dates: start: 201609, end: 20171229
  3. RITUXAN [Suspect]
     Active Substance: RITUXIMAB
     Indication: DIFFUSE LARGE B-CELL LYMPHOMA

REACTIONS (1)
  - Ocular neoplasm [Unknown]

NARRATIVE: CASE EVENT DATE: 201712
